FAERS Safety Report 14325675 (Version 1)
Quarter: 2017Q4

REPORT INFORMATION
  Report Type: Spontaneous
  Country: US (occurrence: US)
  Receive Date: 20171226
  Receipt Date: 20171226
  Transmission Date: 20180321
  Serious: Yes (Other)
  Sender: FDA-Public Use
  Company Number: US-SA-2016SA237449

PATIENT
  Age: 20 Year
  Sex: Female

DRUGS (1)
  1. THYROGEN [Suspect]
     Active Substance: THYROTROPIN ALFA
     Indication: DIAGNOSTIC PROCEDURE
     Route: 065
     Dates: start: 20161219, end: 20161220

REACTIONS (3)
  - Palpitations [Unknown]
  - Hyperthyroidism [Unknown]
  - Heart rate increased [Unknown]

NARRATIVE: CASE EVENT DATE: 201612
